FAERS Safety Report 25097127 (Version 1)
Quarter: 2025Q1

REPORT INFORMATION
  Report Type: Spontaneous
  Country: CN (occurrence: CN)
  Receive Date: 20250319
  Receipt Date: 20250319
  Transmission Date: 20250408
  Serious: Yes (Other)
  Sender: JIANGSU HENGRUI
  Company Number: CN-JIANGSU HENGRUI PHARMACEUTICALS CO., LTD.-H2025207007

PATIENT
  Age: 51 Year
  Weight: 62 kg

DRUGS (2)
  1. PACLITAXEL [Suspect]
     Active Substance: PACLITAXEL
     Indication: Pancreatic carcinoma
  2. GEMCITABINE HYDROCHLORIDE [Suspect]
     Active Substance: GEMCITABINE HYDROCHLORIDE
     Indication: Pancreatic carcinoma

REACTIONS (1)
  - Platelet count increased [Recovering/Resolving]
